FAERS Safety Report 7044031-4 (Version None)
Quarter: 2010Q4

REPORT INFORMATION
  Report Type: 
  Country: None (occurrence: None)
  Receive Date: 20101013
  Receipt Date: 20101006
  Transmission Date: 20110411
  Serious: Yes (Death, Hospitalization, Other)
  Sender: FDA-Public Use
  Company Number: US-AMGEN-QUU440022

PATIENT
  Sex: Male
  Weight: 86.7 kg

DRUGS (18)
  1. NPLATE [Suspect]
     Indication: IDIOPATHIC THROMBOCYTOPENIC PURPURA
     Route: 058
     Dates: start: 20100505, end: 20100916
  2. CORTICOSTEROIDS [Concomitant]
     Dates: start: 20100310
  3. RITUXIMAB [Concomitant]
     Dates: start: 20100420
  4. METFORMIN [Concomitant]
     Route: 048
  5. LIPITOR [Concomitant]
     Route: 048
  6. LISINOPRIL [Concomitant]
     Route: 048
  7. ACTOS [Concomitant]
     Route: 048
  8. FLOMAX [Concomitant]
  9. FOLIC ACID [Concomitant]
  10. VITAMIN B-12 [Concomitant]
  11. DEXAMETHASONE [Concomitant]
  12. LASIX [Concomitant]
  13. POTASSIUM [Concomitant]
  14. HYDROCHLOROTHIAZIDE [Concomitant]
  15. PEMETREXED DISODIUM [Concomitant]
  16. CARBOPLATIN [Concomitant]
  17. ASPIRIN [Concomitant]
     Route: 048
  18. OMEPRAZOLE [Concomitant]

REACTIONS (7)
  - ANAEMIA [None]
  - CEREBROVASCULAR ACCIDENT [None]
  - LUNG CANCER METASTATIC [None]
  - METASTASES TO BONE [None]
  - PLEURAL EFFUSION [None]
  - PNEUMONIA [None]
  - PNEUMONITIS [None]
